FAERS Safety Report 4601820-0 (Version None)
Quarter: 2005Q1

REPORT INFORMATION
  Report Type: 
  Country: None (occurrence: None)
  Receive Date: 20050131
  Receipt Date: 20041028
  Transmission Date: 20050727
  Serious: No
  Sender: FDA-Public Use
  Company Number: 200417772US

PATIENT
  Sex: Female
  Weight: 69 kg

DRUGS (4)
  1. TELITHROMYCIN (KETEK)TABLETS [Suspect]
     Indication: ACUTE SINUSITIS
     Dosage: 400 2 TBLS MG QD PO
     Route: 048
     Dates: start: 20040831, end: 20040902
  2. TELITHROMYCIN (KETEK)TABLETS [Suspect]
     Indication: BACTERIAL INFECTION
     Dosage: 400 2 TBLS MG QD PO
     Route: 048
     Dates: start: 20040831, end: 20040902
  3. FLUOXETINE HYDROCHLORIDE [Concomitant]
  4. WATER RETENTION DRUG [Concomitant]

REACTIONS (5)
  - ANXIETY [None]
  - HEART RATE INCREASED [None]
  - HYPERTENSION [None]
  - PALPITATIONS [None]
  - TREMOR [None]
